FAERS Safety Report 7207837-4 (Version None)
Quarter: 2010Q4

REPORT INFORMATION
  Report Type: 
  Country: None (occurrence: None)
  Receive Date: 20101221
  Receipt Date: 20101208
  Transmission Date: 20110411
  Serious: Yes (Other)
  Sender: FDA-Public Use
  Company Number: 1000017731

PATIENT
  Age: 70 Year
  Sex: Female

DRUGS (7)
  1. MILNACIPRAN (MILNACIPRAN HYDROCHLORIDE) (CAPSULES) [Suspect]
     Indication: DEPRESSION
     Dosage: 50 MG (25 MG, 2 IN 1 D), ORAL
     Route: 048
     Dates: start: 20080101
  2. ATACAND [Concomitant]
  3. STABLON (TIANEPTINE SODIUM) (TIANEPTINE SODIUM) [Concomitant]
  4. KARDEGIC (ACETYLSALICYLATE LYSINE) (ACETYLSALICYLATE LYSINE) [Concomitant]
  5. LAMICTAL [Concomitant]
  6. STILNOX (ZOLPIDEM TARTRATE) (ZOLPIDEM TARTRATE) [Concomitant]
  7. TEMESTA (LORAZEPAM) (LORAZEPAM) [Concomitant]

REACTIONS (4)
  - DRUG EFFECT DECREASED [None]
  - ELECTROCARDIOGRAM QT PROLONGED [None]
  - EXTRASYSTOLES [None]
  - PALPITATIONS [None]
